FAERS Safety Report 7153142-4 (Version None)
Quarter: 2010Q4

REPORT INFORMATION
  Report Type: 
  Country: None (occurrence: None)
  Receive Date: 20101213
  Receipt Date: 20101208
  Transmission Date: 20110411
  Serious: Yes (Hospitalization, Other)
  Sender: FDA-Public Use
  Company Number: US-PFIZER INC-2010121897

PATIENT
  Sex: Female
  Weight: 78 kg

DRUGS (7)
  1. CHANTIX [Suspect]
     Indication: SMOKING CESSATION THERAPY
     Dosage: UNK
  2. NICOTROL [Suspect]
     Indication: SMOKING CESSATION THERAPY
     Dosage: 10 MG, UNK
     Dates: start: 20100601, end: 20100601
  3. NICOTROL [Suspect]
     Dosage: UNK
     Dates: start: 20100901
  4. MAGNESIUM [Concomitant]
     Dosage: UNK
  5. GLIPIZIDE [Concomitant]
     Dosage: UNK
  6. HYDROCHLOROTHIAZIDE [Concomitant]
     Dosage: UNK
  7. INSULIN [Concomitant]
     Indication: DIABETES MELLITUS
     Dosage: UNK

REACTIONS (9)
  - APPENDICITIS [None]
  - ARTHRALGIA [None]
  - DRUG INEFFECTIVE [None]
  - DYSGEUSIA [None]
  - HYPOAESTHESIA [None]
  - IMPAIRED WORK ABILITY [None]
  - NERVOUSNESS [None]
  - STRESS [None]
  - WEIGHT FLUCTUATION [None]
